FAERS Safety Report 9381846 (Version 3)
Quarter: 2013Q4

REPORT INFORMATION
  Report Type: Spontaneous
  Country: US (occurrence: US)
  Receive Date: 20130703
  Receipt Date: 20131001
  Transmission Date: 20140711
  Serious: Yes (Death, Hospitalization)
  Sender: FDA-Public Use
  Company Number: US-B.I. PHARMACEUTICALS,INC./RIDGEFIELD-2013-BI-18454BP

PATIENT
  Sex: Female

DRUGS (6)
  1. JENTADUETO [Suspect]
     Dosage: STRENGTH: 2.5 MG / 1000 MG; DAILY DOSE: 2.5 MG/1000 MG
     Route: 048
     Dates: start: 20130424
  2. XANAX [Concomitant]
     Route: 048
  3. ASPIRIN [Concomitant]
     Route: 048
  4. FLEXERIL [Concomitant]
     Route: 048
  5. EVOCLIN [Concomitant]
     Route: 061
  6. CYMBALTA [Concomitant]
     Route: 048

REACTIONS (1)
  - Staphylococcal infection [Fatal]
